FAERS Safety Report 9381415 (Version 1)
Quarter: 2013Q3

REPORT INFORMATION
  Report Type: Report from Study
  Country: US (occurrence: US)
  Receive Date: 20130703
  Receipt Date: 20130703
  Transmission Date: 20140515
  Serious: Yes (Hospitalization)
  Sender: FDA-Public Use
  Company Number: PHEH2013US014006

PATIENT
  Sex: Female

DRUGS (1)
  1. GILENYA [Suspect]
     Indication: MULTIPLE SCLEROSIS
     Dosage: 0.5 MG, QD
     Route: 048
     Dates: start: 20120604

REACTIONS (5)
  - Central nervous system lesion [Unknown]
  - Mental impairment [Unknown]
  - Memory impairment [Unknown]
  - Cognitive disorder [Unknown]
  - Disturbance in attention [Unknown]
